FAERS Safety Report 6476534-5 (Version None)
Quarter: 2009Q4

REPORT INFORMATION
  Report Type: 
  Country: None (occurrence: None)
  Receive Date: 20091207
  Receipt Date: 20091128
  Transmission Date: 20100525
  Serious: Yes (Other)
  Sender: FDA-Public Use
  Company Number: US-RB-026308-09

PATIENT
  Age: 26 Year
  Sex: Male

DRUGS (2)
  1. DELSYM ADULT GRAPE 5 OZ [Suspect]
     Indication: COUGH
     Dosage: INGESTED HALF THE CONTAINER OF THE PRODUCT
     Route: 048
     Dates: start: 20091127
  2. IBUPROFEN [Concomitant]
     Dates: start: 20091127

REACTIONS (6)
  - ACCIDENTAL OVERDOSE [None]
  - DIZZINESS [None]
  - HAEMOPTYSIS [None]
  - HEADACHE [None]
  - PRODUCTIVE COUGH [None]
  - PYREXIA [None]
